FAERS Safety Report 7889548-5 (Version None)
Quarter: 2011Q4

REPORT INFORMATION
  Report Type: 
  Country: None (occurrence: None)
  Receive Date: 20111103
  Receipt Date: 20110203
  Transmission Date: 20120403
  Serious: No
  Sender: FDA-Public Use
  Company Number: US-BRISTOL-MYERS SQUIBB COMPANY-15399983

PATIENT

DRUGS (1)
  1. KENALOG-40 [Suspect]
     Dosage: 1DF=40MG/ML. KENALOG 40 IS THE STRENGTH.BULK LOT#0E63869 VIAL 10US 0003-0293-28
     Route: 030

REACTIONS (1)
  - DRUG INEFFECTIVE [None]
